FAERS Safety Report 4777197-7 (Version None)
Quarter: 2005Q3

REPORT INFORMATION
  Report Type: 
  Country: None (occurrence: None)
  Receive Date: 20050915
  Receipt Date: 20050906
  Transmission Date: 20060218
  Serious: Yes (Hospitalization)
  Sender: FDA-Public Use
  Company Number: 2005-08-0469

PATIENT
  Age: 46 Year
  Sex: Female
  Weight: 50 kg

DRUGS (9)
  1. PEG-INTRON [Suspect]
     Indication: HEPATITIS C
     Dosage: SEE IMAGE
     Route: 058
     Dates: start: 20050311, end: 20050101
  2. PEG-INTRON [Suspect]
     Indication: HEPATITIS C
     Dosage: SEE IMAGE
     Route: 058
     Dates: start: 20050101, end: 20050829
  3. PEG-INTRON [Suspect]
     Indication: HEPATITIS C
     Dosage: SEE IMAGE
     Route: 058
     Dates: start: 20050311, end: 20050829
  4. REBETOL [Suspect]
     Indication: HEPATITIS C
     Dosage: 600 MG, ORAL
     Route: 048
     Dates: start: 20050311, end: 20050905
  5. FERROUS CITRATE [Concomitant]
  6. LOXOPROFEN SODIUM [Concomitant]
  7. REBAMIPIDE [Concomitant]
  8. BOFU-TSUSHO-SAN GRANULES [Concomitant]
  9. LENDORMIN [Concomitant]

REACTIONS (2)
  - BREAST CANCER [None]
  - IMPAIRED HEALING [None]
